FAERS Safety Report 4339147-7 (Version None)
Quarter: 2004Q2

REPORT INFORMATION
  Report Type: 
  Country: None (occurrence: None)
  Receive Date: 20040414
  Receipt Date: 20040414
  Transmission Date: 20050107
  Serious: Yes (Life-Threatening)
  Sender: FDA-Public Use
  Company Number: None

PATIENT

DRUGS (2)
  1. SODIUM POLYSTYRENE SULFONATE [Suspect]
     Dosage: 120 ML ONCE WEEKL ORAL
     Route: 048
  2. PROPRANOLOL [Suspect]

REACTIONS (1)
  - MEDICATION ERROR [None]
